FAERS Safety Report 9034755 (Version 1)
Quarter: 2013Q1

REPORT INFORMATION
  Report Type: Spontaneous
  Country: FR (occurrence: None)
  Receive Date: 20130118
  Receipt Date: 20130118
  Transmission Date: 20140127
  Serious: Yes (Disabling, Other)
  Sender: FDA-Public Use
  Company Number: LTI0T01258306

PATIENT
  Age: 67 Year
  Sex: Male

DRUGS (5)
  1. OGASTORO [Suspect]
     Route: 048
  2. ZYLORIC [Suspect]
     Route: 048
  3. GINKOR FORT [Suspect]
     Route: 048
  4. SERMION [Suspect]
     Route: 048
  5. LESCOL [Suspect]
     Route: 048

REACTIONS (1)
  - Retroperitoneal fibrosis [None]
